FAERS Safety Report 6818594 (Version 13)
Quarter: 2014Q1

REPORT INFORMATION
  Report Type: Spontaneous
  Country: US (occurrence: US)
  Receive Date: 20081121
  Receipt Date: 20140220
  Transmission Date: 20141002
  Serious: Yes (Other)
  Sender: FDA-Public Use
  Company Number: PHEH2008US10232

PATIENT
  Sex: Female

DRUGS (16)
  1. AREDIA [Suspect]
     Indication: BONE LOSS
     Route: 065
     Dates: start: 2003, end: 2007
  2. AREDIA [Suspect]
     Indication: OSTEOPOROSIS
  3. ZOMETA [Suspect]
     Indication: BONE LOSS
     Route: 065
     Dates: start: 2003, end: 20070214
  4. ZOMETA [Suspect]
     Indication: OSTEOPOROSIS
  5. LEVAQUIN [Concomitant]
  6. METRONIDAZOLE [Concomitant]
  7. VITAMIN B12 [Concomitant]
  8. ALBUTEROL [Concomitant]
  9. AROMASIN [Concomitant]
  10. SYMBICORT TURBUHALER ^DRACO^ [Concomitant]
  11. DILTIAZEM [Concomitant]
  12. KLONOPIN [Concomitant]
  13. LUNESTA [Concomitant]
  14. FENTANYL [Concomitant]
  15. FASLODEX [Concomitant]
  16. FEMARA [Concomitant]
     Dosage: 2.5 MG, QD

REACTIONS (81)
  - Cerebral ischaemia [Unknown]
  - Osteonecrosis of jaw [Unknown]
  - Injury [Unknown]
  - Pain [Unknown]
  - Anxiety [Unknown]
  - Physical disability [Unknown]
  - Arthralgia [Unknown]
  - Pain in jaw [Unknown]
  - Oral pain [Unknown]
  - Failure to thrive [Unknown]
  - Weight decreased [Unknown]
  - Vocal cord paralysis [Unknown]
  - Depression [Unknown]
  - Renal cyst [Unknown]
  - Insomnia [Unknown]
  - Muscle spasms [Unknown]
  - Dyspepsia [Unknown]
  - Dizziness [Unknown]
  - Hypertension [Unknown]
  - Diarrhoea [Unknown]
  - Dyspnoea [Unknown]
  - Vision blurred [Unknown]
  - Headache [Unknown]
  - Ear pain [Unknown]
  - Oropharyngeal pain [Unknown]
  - Cough [Unknown]
  - Abdominal pain [Unknown]
  - Nasal congestion [Unknown]
  - Rhinorrhoea [Unknown]
  - Pleural fibrosis [Unknown]
  - Arteriosclerosis [Unknown]
  - Spinal osteoarthritis [Unknown]
  - Intervertebral disc degeneration [Unknown]
  - Emphysema [Unknown]
  - Hypokalaemia [Unknown]
  - Hyponatraemia [Unknown]
  - Dehydration [Unknown]
  - Cachexia [Unknown]
  - Pharyngeal mass [Unknown]
  - Epiglottic oedema [Unknown]
  - Oral disorder [Unknown]
  - Cataract [Unknown]
  - Eyelid ptosis [Unknown]
  - Hypermetropia [Unknown]
  - Myopia [Unknown]
  - Musculoskeletal chest pain [Unknown]
  - Vaginal discharge [Unknown]
  - Vulvovaginal pruritus [Unknown]
  - Vulvovaginal mycotic infection [Unknown]
  - Hypertonic bladder [Unknown]
  - Osteopenia [Unknown]
  - Gastrooesophageal reflux disease [Unknown]
  - Ataxia [Unknown]
  - Myoclonus [Recovered/Resolved]
  - Nervous system disorder [Unknown]
  - Anaemia [Unknown]
  - Osteitis [Unknown]
  - Abscess [Unknown]
  - Bone fragmentation [Unknown]
  - Necrosis [Unknown]
  - Osteomyelitis acute [Unknown]
  - Osteomyelitis chronic [Unknown]
  - Cellulitis [Unknown]
  - Lymphadenopathy [Unknown]
  - Haemangioma of bone [Unknown]
  - Productive cough [Unknown]
  - Pulmonary mass [Unknown]
  - Arteriosclerosis coronary artery [Unknown]
  - Vertebral foraminal stenosis [Unknown]
  - Exostosis [Unknown]
  - Muscle atrophy [Unknown]
  - Delirium [Unknown]
  - Gait disturbance [Unknown]
  - Local swelling [Unknown]
  - Dysphonia [Unknown]
  - Constipation [Unknown]
  - Neck pain [Unknown]
  - Fatigue [Unknown]
  - Tremor [Unknown]
  - Tooth abscess [Unknown]
  - Gingival pain [Unknown]
